FAERS Safety Report 6912197-X (Version None)
Quarter: 2010Q3

REPORT INFORMATION
  Report Type: 
  Country: None (occurrence: None)
  Receive Date: 20100806
  Receipt Date: 20071206
  Transmission Date: 20110219
  Serious: Yes (Other)
  Sender: FDA-Public Use
  Company Number: US-PFIZER INC-2007103293

PATIENT
  Sex: Female
  Weight: 54.43 kg

DRUGS (2)
  1. DILANTIN [Suspect]
     Indication: EPILEPSY
     Dates: start: 20060601
  2. CYCLOBENZAPRINE [Concomitant]
     Indication: HYPOTONIA

REACTIONS (6)
  - BACK DISORDER [None]
  - BACK PAIN [None]
  - HAEMOGLOBIN INCREASED [None]
  - PYREXIA [None]
  - RASH PRURITIC [None]
  - SLEEP DISORDER [None]
